FAERS Safety Report 5934566-7 (Version None)
Quarter: 2008Q4

REPORT INFORMATION
  Report Type: 
  Country: None (occurrence: None)
  Receive Date: 20081029
  Receipt Date: 20081017
  Transmission Date: 20090506
  Serious: Yes (Other)
  Sender: FDA-Public Use
  Company Number: KR-PFIZER INC-2008081948

PATIENT
  Age: 69 Year
  Sex: Female

DRUGS (2)
  1. GABAPENTIN [Suspect]
     Indication: PARAESTHESIA
     Dosage: DAILY DOSE:900MG
  2. TRAMADOL HCL [Interacting]
     Indication: PARAESTHESIA

REACTIONS (2)
  - DRUG INTERACTION [None]
  - MYOCLONUS [None]
